FAERS Safety Report 17090040 (Version 1)
Quarter: 2019Q4

REPORT INFORMATION
  Report Type: Spontaneous
  Country: US (occurrence: US)
  Receive Date: 20191129
  Receipt Date: 20191129
  Transmission Date: 20200122
  Serious: No
  Sender: FDA-Public Use
  Company Number: US-SHIRE-US201941177

PATIENT
  Sex: Male

DRUGS (2)
  1. GATTEX [Suspect]
     Active Substance: TEDUGLUTIDE\WATER
     Indication: ABNORMAL LOSS OF WEIGHT
  2. GATTEX [Suspect]
     Active Substance: TEDUGLUTIDE\WATER
     Indication: COLITIS ULCERATIVE
     Dosage: 0.43 MILLILITER, 1X/DAY:QD
     Route: 058
     Dates: start: 20190805

REACTIONS (2)
  - Urinary tract infection [Unknown]
  - Inappropriate schedule of product administration [Unknown]
